FAERS Safety Report 6918762-8 (Version None)
Quarter: 2010Q3

REPORT INFORMATION
  Report Type: 
  Country: None (occurrence: None)
  Receive Date: 20100811
  Receipt Date: 20100805
  Transmission Date: 20110219
  Serious: Yes (Other)
  Sender: FDA-Public Use
  Company Number: US-RB-012158-10

PATIENT
  Age: 42 Year
  Sex: Female

DRUGS (1)
  1. SUBOXONE [Suspect]
     Indication: PRODUCT USED FOR UNKNOWN INDICATION
     Dosage: UNKNOWN DOSING DETAILS
     Route: 065

REACTIONS (13)
  - CHEST PAIN [None]
  - CHILLS [None]
  - DEPRESSION [None]
  - DRUG DEPENDENCE [None]
  - DYSPEPSIA [None]
  - FATIGUE [None]
  - FOOD CRAVING [None]
  - HALLUCINATION, AUDITORY [None]
  - HEART RATE INCREASED [None]
  - NECK PAIN [None]
  - SLEEP TALKING [None]
  - SOMNOLENCE [None]
  - TREMOR [None]
